FAERS Safety Report 17464687 (Version 3)
Quarter: 2020Q4

REPORT INFORMATION
  Report Type: Report from Study
  Country: US (occurrence: US)
  Receive Date: 20200226
  Receipt Date: 20201008
  Transmission Date: 20210113
  Serious: No
  Sender: FDA-Public Use
  Company Number: NVSC2020US052683

PATIENT
  Age: 77 Year
  Sex: Female

DRUGS (1)
  1. PROMACTA [Suspect]
     Active Substance: ELTROMBOPAG OLAMINE
     Indication: THROMBOCYTOPENIA
     Dosage: 50 MG, QW
     Route: 048

REACTIONS (1)
  - Product availability issue [Unknown]

NARRATIVE: CASE EVENT DATE: 20200220
